FAERS Safety Report 4802837-3 (Version None)
Quarter: 2005Q4

REPORT INFORMATION
  Report Type: 
  Country: None (occurrence: None)
  Receive Date: 20051013
  Receipt Date: 20051005
  Transmission Date: 20060501
  Serious: Yes (Other)
  Sender: FDA-Public Use
  Company Number: 2005BH002108

PATIENT
  Age: 46 Year
  Sex: Male

DRUGS (6)
  1. PHENYTOIN [Suspect]
     Indication: GRAND MAL CONVULSION
     Dosage: SEE IMAGE
     Route: 042
  2. PIRIDOXINE [Concomitant]
  3. AMOXICILLIN AND CLAVULANATE POTASSIUM [Concomitant]
  4. CEFOTAXIME [Concomitant]
  5. VALPROATE SODIUM [Concomitant]
  6. VALPROIC ACID [Concomitant]

REACTIONS (2)
  - HAEMOPHILUS INFECTION [None]
  - RHABDOMYOLYSIS [None]
